FAERS Safety Report 6770000-5 (Version None)
Quarter: 2010Q2

REPORT INFORMATION
  Report Type: 
  Country: None (occurrence: None)
  Receive Date: 20100520
  Receipt Date: 20090702
  Transmission Date: 20101027
  Serious: Yes (Other)
  Sender: FDA-Public Use
  Company Number: 2008075335

PATIENT
  Age: 62 Year
  Sex: Female
  Weight: 52 kg

DRUGS (7)
  1. PROVERA [Suspect]
     Indication: HORMONE REPLACEMENT THERAPY
     Dosage: ORAL
     Route: 048
     Dates: start: 19790101, end: 20040101
  2. ESTRADERM [Suspect]
     Indication: HORMONE REPLACEMENT THERAPY
     Dosage: TRANSDERMAL
     Route: 062
     Dates: start: 19900101, end: 20040101
  3. PREMARIN [Suspect]
     Indication: HORMONE REPLACEMENT THERAPY
     Dosage: 1.25 MG
     Dates: start: 19790101, end: 20040101
  4. IMIPRAMINE [Concomitant]
  5. THYROID TAB [Concomitant]
  6. ALBUTEROL [Concomitant]
  7. FLOVENT [Concomitant]

REACTIONS (1)
  - BREAST CANCER FEMALE [None]
